FAERS Safety Report 9019656 (Version 3)
Quarter: 2013Q1

REPORT INFORMATION
  Report Type: Spontaneous
  Country: US (occurrence: US)
  Receive Date: 20130118
  Receipt Date: 20130319
  Transmission Date: 20140127
  Serious: Yes (Congenital Anomaly, Other)
  Sender: FDA-Public Use
  Company Number: US-PFIZER INC-2012110025

PATIENT
  Sex: Male

DRUGS (8)
  1. ZOLOFT [Suspect]
     Dosage: UNK
     Route: 064
     Dates: start: 19981009
  2. ZOLOFT [Suspect]
     Dosage: 100 MG
     Route: 064
     Dates: start: 20030216, end: 20110119
  3. SERTRALINE HCL [Suspect]
     Indication: ANXIETY
     Dosage: 100 MG, UNK
     Route: 064
     Dates: start: 20070627
  4. SERTRALINE HCL [Suspect]
     Indication: DEPRESSION
     Dosage: 25 MG, UNK
     Route: 064
     Dates: start: 20080409
  5. SERTRALINE HCL [Suspect]
     Indication: AFFECTIVE DISORDER
  6. PRENATAL [Concomitant]
     Dosage: UNK
     Route: 064
     Dates: start: 20071202
  7. TYLENOL [Concomitant]
     Dosage: UNK
     Route: 064
  8. PRENATAL VITAMINS [Concomitant]
     Dosage: UNK
     Route: 064

REACTIONS (4)
  - Maternal exposure timing unspecified [Unknown]
  - Transposition of the great vessels [Unknown]
  - Pulmonary hypertension [Unknown]
  - Atrial septal defect [Unknown]
